APPROVED DRUG PRODUCT: EMCYT
Active Ingredient: ESTRAMUSTINE PHOSPHATE SODIUM
Strength: EQ 140MG PHOSPHATE
Dosage Form/Route: CAPSULE;ORAL
Application: N018045 | Product #001
Applicant: PHARMACIA AND UPJOHN CO
Approved: Approved Prior to Jan 1, 1982 | RLD: Yes | RS: No | Type: DISCN